FAERS Safety Report 13917823 (Version 1)
Quarter: 2017Q3

REPORT INFORMATION
  Report Type: Spontaneous
  Country: JP (occurrence: JP)
  Receive Date: 20170829
  Receipt Date: 20170829
  Transmission Date: 20171127
  Serious: Yes (Other)
  Sender: FDA-Public Use
  Company Number: JP-BAUSCH-BL-2017-025391

PATIENT
  Age: 76 Year
  Sex: Male

DRUGS (1)
  1. ERYTHROMYCIN. [Suspect]
     Active Substance: ERYTHROMYCIN
     Indication: PSEUDOMONAS INFECTION
     Dosage: LOW-DOSE
     Route: 065

REACTIONS (1)
  - Respiratory tract inflammation [Unknown]
